FAERS Safety Report 7525916-9 (Version None)
Quarter: 2011Q2

REPORT INFORMATION
  Report Type: 
  Country: None (occurrence: None)
  Receive Date: 20110606
  Receipt Date: 20110527
  Transmission Date: 20111010
  Serious: Yes (Other)
  Sender: FDA-Public Use
  Company Number: B0723709A

PATIENT
  Age: 5 Year
  Sex: Female

DRUGS (3)
  1. DEXTROSE [Concomitant]
     Route: 065
  2. CICLESONIDE [Concomitant]
     Route: 065
  3. FLUTICASONE PROPIONATE [Suspect]
     Indication: ASTHMA
     Route: 055

REACTIONS (4)
  - CONVULSION [None]
  - ADRENAL SUPPRESSION [None]
  - BLOOD CORTISOL DECREASED [None]
  - HYPOGLYCAEMIA [None]
